FAERS Safety Report 8021350-6 (Version None)
Quarter: 2011Q4

REPORT INFORMATION
  Report Type: 
  Country: None (occurrence: None)
  Receive Date: 20111230
  Receipt Date: 20111230
  Transmission Date: 20120403
  Serious: Yes (Hospitalization)
  Sender: FDA-Public Use
  Company Number: None

PATIENT
  Age: 74 Year
  Sex: Female
  Weight: 98 kg

DRUGS (1)
  1. AMITRIPTYLINE HCL [Suspect]
     Indication: HEADACHE
     Dosage: MG PO
     Route: 048
     Dates: start: 20110921, end: 20111019

REACTIONS (10)
  - PALLOR [None]
  - VISION BLURRED [None]
  - SOMNOLENCE [None]
  - DIPLOPIA [None]
  - PULSE PRESSURE DECREASED [None]
  - AMNESIA [None]
  - VISUAL IMPAIRMENT [None]
  - HEADACHE [None]
  - DEPRESSED LEVEL OF CONSCIOUSNESS [None]
  - SEDATION [None]
